FAERS Safety Report 4441019-4 (Version None)
Quarter: 2004Q3

REPORT INFORMATION
  Report Type: 
  Country: None (occurrence: None)
  Receive Date: 20040728
  Receipt Date: 20040414
  Transmission Date: 20050211
  Serious: No
  Sender: FDA-Public Use
  Company Number: USA040464986

PATIENT
  Sex: Female
  Weight: 36 kg

DRUGS (2)
  1. STRATTERA [Suspect]
     Indication: ATTENTION DEFICIT/HYPERACTIVITY DISORDER
     Dosage: 25 MG DAY
     Dates: start: 20040207
  2. PAXIL [Concomitant]

REACTIONS (3)
  - ADJUSTMENT DISORDER [None]
  - DRUG INEFFECTIVE [None]
  - SOMNOLENCE [None]
